FAERS Safety Report 25676170 (Version 1)
Quarter: 2025Q3

REPORT INFORMATION
  Report Type: Spontaneous
  Country: US (occurrence: US)
  Receive Date: 20250813
  Receipt Date: 20250813
  Transmission Date: 20251021
  Serious: No
  Sender: ANI
  Company Number: US-ANIPHARMA-2024-US-060774

PATIENT
  Sex: Female

DRUGS (3)
  1. ARIMIDEX [Suspect]
     Active Substance: ANASTROZOLE
     Indication: Product used for unknown indication
  2. IBRANCE [Suspect]
     Active Substance: PALBOCICLIB
     Route: 048
     Dates: start: 20240717
  3. ENHERTU [Suspect]
     Active Substance: FAM-TRASTUZUMAB DERUXTECAN-NXKI

REACTIONS (1)
  - Blood test abnormal [Recovering/Resolving]
